FAERS Safety Report 4556089-2 (Version None)
Quarter: 2005Q1

REPORT INFORMATION
  Report Type: 
  Country: None (occurrence: None)
  Receive Date: 20050114
  Receipt Date: 20050105
  Transmission Date: 20050727
  Serious: Yes (Hospitalization, Other)
  Sender: FDA-Public Use
  Company Number: 2004092981

PATIENT
  Age: 54 Year
  Sex: Male

DRUGS (8)
  1. LIPITOR [Suspect]
     Indication: HYPERLIPIDAEMIA
     Dosage: ORAL
     Route: 048
  2. LITHIUM CARBONATE [Suspect]
     Indication: MANIA
     Dosage: 600 MG, ORAL
     Route: 048
  3. CHLORPROMAZINE [Suspect]
     Indication: MANIA
     Dosage: 125 MG, ORAL
     Route: 048
  4. VALPROATE SODIUM [Suspect]
     Indication: MANIA
     Dosage: ORAL
     Route: 048
  5. LEVOMEPROMAZINE MALEATE (LEVOMEPROMAZINE MALEATE) [Suspect]
     Indication: MANIA
     Dosage: ORAL
     Route: 048
  6. OLANZAPINE [Concomitant]
  7. CLONAZEPAM [Concomitant]
  8. RISPERDAL [Concomitant]

REACTIONS (19)
  - ALANINE AMINOTRANSFERASE INCREASED [None]
  - ASPARTATE AMINOTRANSFERASE INCREASED [None]
  - BLOOD UREA INCREASED [None]
  - DELUSION OF GRANDEUR [None]
  - DEPRESSED LEVEL OF CONSCIOUSNESS [None]
  - DEPRESSION [None]
  - DISEASE RECURRENCE [None]
  - DRUG INTERACTION [None]
  - ERECTILE DYSFUNCTION [None]
  - FLIGHT OF IDEAS [None]
  - HAEMODIALYSIS [None]
  - HYPERKINESIA [None]
  - LOGORRHOEA [None]
  - MENTAL DISORDER [None]
  - MOVEMENT DISORDER [None]
  - PAIN [None]
  - RHABDOMYOLYSIS [None]
  - SLEEP DISORDER [None]
  - WHITE BLOOD CELL COUNT INCREASED [None]
